FAERS Safety Report 15208020 (Version 1)
Quarter: 2018Q3

REPORT INFORMATION
  Report Type: Spontaneous
  Country: FR (occurrence: FR)
  Receive Date: 20180727
  Receipt Date: 20180727
  Transmission Date: 20181010
  Serious: Yes (Hospitalization)
  Sender: FDA-Public Use
  Company Number: FR-TEVA-2018-FR-930445

PATIENT
  Age: 92 Year
  Sex: Male
  Weight: 86.6 kg

DRUGS (7)
  1. ALLOPURINOL. [Concomitant]
     Active Substance: ALLOPURINOL
     Route: 065
  2. BISOPROLOL (FUMARATE DE) [Concomitant]
     Active Substance: BISOPROLOL FUMARATE
     Route: 065
  3. FOLIC ACID. [Concomitant]
     Active Substance: FOLIC ACID
     Route: 065
  4. KARDEGIC [Concomitant]
     Active Substance: ASPIRIN DL-LYSINE
  5. FUROSEMIDE. [Concomitant]
     Active Substance: FUROSEMIDE
     Route: 065
  6. METHOTREXATE. [Suspect]
     Active Substance: METHOTREXATE
     Indication: PSORIASIS
     Dosage: 7.5 MILLIGRAM DAILY;
     Route: 048
  7. VITAMINE E (ACETATE DE) ? FORME D [Concomitant]
     Route: 065

REACTIONS (1)
  - Bicytopenia [Recovering/Resolving]

NARRATIVE: CASE EVENT DATE: 20180528
